FAERS Safety Report 21527559 (Version 2)
Quarter: 2022Q4

REPORT INFORMATION
  Report Type: Other
  Country: US (occurrence: None)
  Receive Date: 20221031
  Receipt Date: 20221109
  Transmission Date: 20230113
  Serious: Yes (Other)
  Sender: FDA-Public Use
  Company Number: US-ROCHE-3207492

PATIENT
  Age: 52 Year
  Sex: Male

DRUGS (9)
  1. OCRELIZUMAB [Suspect]
     Active Substance: OCRELIZUMAB
     Indication: Multiple sclerosis
     Dosage: 19/JAN/2021 (300MG), 06JUL2021 (600MG), 04/JAN/2022 (600 MG)
     Route: 042
     Dates: start: 20210105
  2. LEVOTHYROXINE [Concomitant]
     Active Substance: LEVOTHYROXINE
     Dates: start: 20170323
  3. WELLBUTRIN [Concomitant]
     Active Substance: BUPROPION HYDROCHLORIDE
     Dates: start: 20160621
  4. VITAMIN D3 [Concomitant]
     Active Substance: CHOLECALCIFEROL
     Dates: start: 20160524
  5. FINGOLIMOD [Concomitant]
     Active Substance: FINGOLIMOD
     Dates: start: 20140903, end: 2015
  6. DIMETHYL FUMARATE [Concomitant]
     Active Substance: DIMETHYL FUMARATE
     Dates: start: 20150331, end: 20151106
  7. ALEMTUZUMAB [Concomitant]
     Active Substance: ALEMTUZUMAB
     Dates: start: 20170220, end: 20180228
  8. DIAZEPAM [Concomitant]
     Active Substance: DIAZEPAM
     Dates: start: 20211216
  9. GABAPENTIN [Concomitant]
     Active Substance: GABAPENTIN
     Dates: start: 20180820

REACTIONS (1)
  - Upper respiratory tract infection [Not Recovered/Not Resolved]

NARRATIVE: CASE EVENT DATE: 20220607
